FAERS Safety Report 17004366 (Version 2)
Quarter: 2019Q4

REPORT INFORMATION
  Report Type: Report from Study
  Country: JP (occurrence: JP)
  Receive Date: 20191107
  Receipt Date: 20191231
  Transmission Date: 20200122
  Serious: Yes (Hospitalization, Other)
  Sender: FDA-Public Use
  Company Number: JP-TAKEDA-2019TUS063330

PATIENT
  Age: 74 Year
  Sex: Female
  Weight: 42 kg

DRUGS (7)
  1. MEROPENEM. [Concomitant]
     Active Substance: MEROPENEM
     Indication: URINARY TRACT INFECTION
     Dosage: UNK
     Route: 065
  2. VANCOMYCIN [Concomitant]
     Active Substance: VANCOMYCIN
     Indication: URINARY TRACT INFECTION
     Dosage: UNK
     Route: 065
  3. ALMETA [Concomitant]
     Active Substance: ALCLOMETASONE DIPROPIONATE
     Indication: RASH
     Dosage: UNK
     Route: 065
  4. PONATINIB [Suspect]
     Active Substance: PONATINIB
     Dosage: 30 MILLIGRAM, QD
     Route: 048
     Dates: start: 20171130, end: 20171221
  5. PONATINIB [Suspect]
     Active Substance: PONATINIB
     Indication: ACUTE LYMPHOCYTIC LEUKAEMIA
     Dosage: 30 MILLIGRAM, QD
     Route: 048
     Dates: start: 20170105, end: 20171018
  6. PONATINIB [Suspect]
     Active Substance: PONATINIB
     Dosage: 45 MILLIGRAM, QD
     Route: 048
     Dates: start: 20171019, end: 20171129
  7. CEFTRIAXONE. [Concomitant]
     Active Substance: CEFTRIAXONE
     Indication: URINARY TRACT INFECTION
     Dosage: UNK
     Route: 065

REACTIONS (4)
  - Septic shock [Recovering/Resolving]
  - Stress cardiomyopathy [Recovering/Resolving]
  - Urinary tract infection [Recovering/Resolving]
  - Rash [Recovered/Resolved]

NARRATIVE: CASE EVENT DATE: 20171130
